FAERS Safety Report 9492521 (Version 1)
Quarter: 2013Q3

REPORT INFORMATION
  Report Type: Report from Study
  Country: US (occurrence: US)
  Receive Date: 20130830
  Receipt Date: 20130830
  Transmission Date: 20140515
  Serious: Yes (Hospitalization)
  Sender: FDA-Public Use
  Company Number: US-ROCHE-1268050

PATIENT
  Sex: Female

DRUGS (1)
  1. XOLAIR [Suspect]
     Indication: ASTHMA
     Dosage: DOSE: 3 SHOTS
     Route: 050
     Dates: start: 20130813

REACTIONS (3)
  - Cardiac disorder [Unknown]
  - Pleural effusion [Unknown]
  - Generalised oedema [Unknown]
